FAERS Safety Report 6967484-6 (Version None)
Quarter: 2010Q3

REPORT INFORMATION
  Report Type: 
  Country: None (occurrence: None)
  Receive Date: 20100901
  Receipt Date: 20100830
  Transmission Date: 20110219
  Serious: Yes (Hospitalization)
  Sender: FDA-Public Use
  Company Number: 2010SP046329

PATIENT
  Age: 61 Year
  Sex: Male

DRUGS (3)
  1. AERIUS (DESLORATADINE /01398501/) [Suspect]
     Indication: RHINITIS ALLERGIC
     Dosage: 5 MG, ONCE; PO
     Route: 048
     Dates: start: 20100804, end: 20100804
  2. SECALIP [Concomitant]
  3. LEXOMIL [Concomitant]

REACTIONS (7)
  - ABDOMINAL PAIN UPPER [None]
  - C-REACTIVE PROTEIN INCREASED [None]
  - DYSPNOEA [None]
  - OXYGEN SATURATION DECREASED [None]
  - PALATAL OEDEMA [None]
  - SPEECH DISORDER [None]
  - URTICARIA [None]
